FAERS Safety Report 13395882 (Version 1)
Quarter: 2017Q2

REPORT INFORMATION
  Report Type: Spontaneous
  Country: CH (occurrence: DE)
  Receive Date: 20170403
  Receipt Date: 20170403
  Transmission Date: 20170830
  Serious: Yes (Other)
  Sender: FDA-Public Use
  Company Number: CH-LPDUSPRD-20170354

PATIENT
  Age: 60 Year
  Sex: Male
  Weight: 75 kg

DRUGS (1)
  1. FERINJECT [Suspect]
     Active Substance: FERRIC CARBOXYMALTOSE
     Dosage: 50 MG
     Route: 065
     Dates: start: 20170307

REACTIONS (3)
  - Drug eruption [Unknown]
  - Pruritus [Unknown]
  - Dyspnoea [Unknown]

NARRATIVE: CASE EVENT DATE: 20170307
